FAERS Safety Report 6679315-2 (Version None)
Quarter: 2010Q2

REPORT INFORMATION
  Report Type: 
  Country: None (occurrence: None)
  Receive Date: 20100408
  Receipt Date: 20090724
  Transmission Date: 20101027
  Serious: No
  Sender: FDA-Public Use
  Company Number: 2009-00501

PATIENT
  Age: 87 Year
  Sex: Female
  Weight: 61.2356 kg

DRUGS (3)
  1. ZICAM COLD REMEDY RAPIDMELTS WITH VITAMIN C [Suspect]
     Dosage: ^WINTER OF 2009^ -
  2. HYDRALAZINE HCL [Concomitant]
  3. LIPITOR [Concomitant]

REACTIONS (1)
  - ANOSMIA [None]
